FAERS Safety Report 23429567 (Version 1)
Quarter: 2024Q1

REPORT INFORMATION
  Report Type: Spontaneous
  Country: RO (occurrence: RO)
  Receive Date: 20240122
  Receipt Date: 20240122
  Transmission Date: 20240410
  Serious: Yes (Other)
  Sender: FDA-Public Use
  Company Number: RO-ANIPHARMA-2024-RO-000001

PATIENT
  Age: 74 Year
  Sex: 0

DRUGS (3)
  1. ANASTROZOLE [Suspect]
     Active Substance: ANASTROZOLE
     Indication: Breast cancer stage IV
     Dosage: 1 MG DAILY
     Route: 065
     Dates: start: 202310
  2. PALBOCICLIB [Suspect]
     Active Substance: PALBOCICLIB
     Dosage: 125 MG UNK
     Route: 065
     Dates: start: 202310
  3. IBANDRONATE SODIUM [Suspect]
     Active Substance: IBANDRONATE SODIUM
     Dosage: 6 MG UNK
     Route: 065
     Dates: start: 202310

REACTIONS (1)
  - Haematotoxicity [Unknown]
